FAERS Safety Report 25029666 (Version 1)
Quarter: 2025Q1

REPORT INFORMATION
  Report Type: Spontaneous
  Country: US (occurrence: US)
  Receive Date: 20250303
  Receipt Date: 20250303
  Transmission Date: 20250409
  Serious: No
  Sender: BRISTOL-MYERS SQUIBB COMPANY
  Company Number: US-MLMSERVICE-20250219-PI414058-00165-18

PATIENT
  Age: 78 Year
  Sex: Male

DRUGS (10)
  1. ABRAXANE [Suspect]
     Active Substance: PACLITAXEL
     Indication: Pancreatic carcinoma stage IV
     Route: 042
     Dates: start: 20200615, end: 20200831
  2. ABRAXANE [Suspect]
     Active Substance: PACLITAXEL
     Indication: Disease progression
  3. NIVOLUMAB [Suspect]
     Active Substance: NIVOLUMAB
     Indication: Pancreatic carcinoma stage IV
     Dates: start: 20200903, end: 20200924
  4. NIVOLUMAB [Suspect]
     Active Substance: NIVOLUMAB
     Indication: Disease progression
  5. GEMCITABINE [Suspect]
     Active Substance: GEMCITABINE
     Indication: Pancreatic carcinoma stage IV
     Route: 042
     Dates: start: 20200615, end: 20200831
  6. GEMCITABINE [Suspect]
     Active Substance: GEMCITABINE
     Indication: Disease progression
  7. ALDOXORUBICIN [Suspect]
     Active Substance: ALDOXORUBICIN
     Indication: Pancreatic carcinoma stage IV
     Route: 042
     Dates: start: 20200618, end: 20200910
  8. ALDOXORUBICIN [Suspect]
     Active Substance: ALDOXORUBICIN
     Indication: Disease progression
  9. ANKTIVA [Suspect]
     Active Substance: NOGAPENDEKIN ALFA INBAKICEPT-PMLN
     Indication: Pancreatic carcinoma stage IV
     Route: 058
     Dates: start: 20200616, end: 20200910
  10. ANKTIVA [Suspect]
     Active Substance: NOGAPENDEKIN ALFA INBAKICEPT-PMLN
     Indication: Disease progression

REACTIONS (1)
  - Abdominal distension [Unknown]

NARRATIVE: CASE EVENT DATE: 20200101
